FAERS Safety Report 18829847 (Version 1)
Quarter: 2021Q1

REPORT INFORMATION
  Report Type: Spontaneous
  Country: US (occurrence: US)
  Receive Date: 20210201
  Receipt Date: 20210201
  Transmission Date: 20210419
  Serious: No
  Sender: FDA-Public Use
  Company Number: US-ABBVIE-20K-163-3630195-00

PATIENT
  Age: 29 Year
  Sex: Female
  Weight: 78.09 kg

DRUGS (6)
  1. PEPCID [Concomitant]
     Active Substance: FAMOTIDINE
     Indication: DYSPEPSIA
  2. ZYRTEC [Concomitant]
     Active Substance: CETIRIZINE HYDROCHLORIDE
     Indication: DYSPEPSIA
  3. HUMIRA [Suspect]
     Active Substance: ADALIMUMAB
     Indication: CROHN^S DISEASE
     Route: 058
     Dates: start: 2019
  4. FLONASE [Concomitant]
     Active Substance: FLUTICASONE PROPIONATE
     Indication: DYSPEPSIA
  5. LACTAID [Concomitant]
     Active Substance: LACTASE
     Indication: DYSPEPSIA
  6. VITAMIN D [Concomitant]
     Active Substance: VITAMIN D NOS
     Indication: DYSPEPSIA

REACTIONS (8)
  - Drug hypersensitivity [Not Recovered/Not Resolved]
  - Incorrect dose administered [Recovered/Resolved]
  - Hepatic enzyme increased [Not Recovered/Not Resolved]
  - Device issue [Recovered/Resolved]
  - Rash [Not Recovered/Not Resolved]
  - Arthropod bite [Not Recovered/Not Resolved]
  - Wrong technique in product usage process [Recovered/Resolved]
  - Injection site haemorrhage [Recovered/Resolved]

NARRATIVE: CASE EVENT DATE: 202009
